FAERS Safety Report 9410607 (Version 1)
Quarter: 2013Q3

REPORT INFORMATION
  Report Type: Spontaneous
  Country: US (occurrence: US)
  Receive Date: 20130719
  Receipt Date: 20130719
  Transmission Date: 20140515
  Serious: Yes (Other)
  Sender: FDA-Public Use
  Company Number: US-BRISTOL-MYERS SQUIBB COMPANY-19118140

PATIENT
  Sex: 0

DRUGS (1)
  1. ABILIFY [Suspect]
     Dosage: 1DF:10-15MG

REACTIONS (2)
  - Psychotic disorder [Unknown]
  - Insomnia [Unknown]
